FAERS Safety Report 16603164 (Version 2)
Quarter: 2019Q3

REPORT INFORMATION
  Report Type: Spontaneous
  Country: JP (occurrence: JP)
  Receive Date: 20190721
  Receipt Date: 20190917
  Transmission Date: 20191004
  Serious: Yes (Other)
  Sender: FDA-Public Use
  Company Number: JP-AMGEN-JPNSP2019106173

PATIENT
  Age: 66 Year
  Sex: Male

DRUGS (11)
  1. GEMCITABINE [GEMCITABINE HYDROCHLORIDE] [Concomitant]
     Dosage: UNK
     Route: 041
     Dates: start: 20190605, end: 20190605
  2. RANDA [Concomitant]
     Active Substance: CISPLATIN
     Dosage: UNK
     Route: 041
     Dates: start: 20190612, end: 20190612
  3. G-LASTA [Suspect]
     Active Substance: PEGFILGRASTIM
     Indication: NEUTROPHIL COUNT DECREASED
     Dosage: 3.6 MILLIGRAM
     Route: 058
  4. GEMCITABINE [GEMCITABINE HYDROCHLORIDE] [Concomitant]
     Dosage: UNK
     Route: 041
     Dates: start: 20190612, end: 20190612
  5. RANDA [Concomitant]
     Active Substance: CISPLATIN
     Indication: BILE DUCT CANCER
     Dosage: UNK UNK, 9X/DAY
     Route: 041
     Dates: start: 20190515, end: 20190515
  6. GEMCITABINE [GEMCITABINE HYDROCHLORIDE] [Concomitant]
     Dosage: UNK
     Route: 041
     Dates: start: 20190522, end: 20190522
  7. G-LASTA [Suspect]
     Active Substance: PEGFILGRASTIM
     Dosage: 3.6 MILLIGRAM
     Route: 058
     Dates: start: 20190523, end: 20190523
  8. RANDA [Concomitant]
     Active Substance: CISPLATIN
     Dosage: UNK
     Route: 041
     Dates: start: 20190522, end: 20190522
  9. RANDA [Concomitant]
     Active Substance: CISPLATIN
     Dosage: UNK
     Route: 041
     Dates: start: 20190605, end: 20190605
  10. G-LASTA [Suspect]
     Active Substance: PEGFILGRASTIM
     Dosage: 3.6 MILLIGRAM
     Route: 058
     Dates: start: 20190613, end: 20190613
  11. GEMCITABINE [GEMCITABINE HYDROCHLORIDE] [Concomitant]
     Indication: BILE DUCT CANCER
     Dosage: UNK
     Route: 041
     Dates: start: 20190515, end: 20190515

REACTIONS (5)
  - Therapeutic procedure [Unknown]
  - Off label use [Unknown]
  - Chemotherapy [Unknown]
  - Neutrophil toxic granulation present [Not Recovered/Not Resolved]
  - Red blood cell poikilocytes [Not Recovered/Not Resolved]

NARRATIVE: CASE EVENT DATE: 20190523
